FAERS Safety Report 21514438 (Version 1)
Quarter: 2022Q4

REPORT INFORMATION
  Report Type: Spontaneous
  Country: FR (occurrence: FR)
  Receive Date: 20221027
  Receipt Date: 20221027
  Transmission Date: 20230112
  Serious: Yes (Death, Life-Threatening, Hospitalization)
  Sender: FDA-Public Use
  Company Number: None

PATIENT
  Age: 75 Year
  Sex: Male
  Weight: 67 kg

DRUGS (9)
  1. CIPROFLOXACIN [Suspect]
     Active Substance: CIPROFLOXACIN
     Indication: Antibiotic therapy
     Dosage: 500 MG PER DAY
     Route: 048
     Dates: start: 20201226, end: 20210102
  2. PRISTINAMYCIN [Suspect]
     Active Substance: PRISTINAMYCIN
     Indication: Antibiotic therapy
     Route: 048
     Dates: start: 20201208, end: 20201219
  3. BACTRIM [Suspect]
     Active Substance: SULFAMETHOXAZOLE\TRIMETHOPRIM
     Indication: Antibiotic therapy
     Dosage: 800 MG 2 FOIS PAR JOUR
     Route: 048
     Dates: start: 20201219, end: 20210102
  4. ALBUTEROL SULFATE [Concomitant]
     Active Substance: ALBUTEROL SULFATE
     Indication: Product used for unknown indication
     Dosage: 1 ? 2 DOSES SI BESOIN (MAXIMUM 8 DOSES PAR JOUR)
     Route: 055
  5. BECLOMETHASONE DIPROPIONATE\FORMOTEROL FUMARATE\GLYCOPYRROLATE [Concomitant]
     Active Substance: BECLOMETHASONE DIPROPIONATE\FORMOTEROL FUMARATE\GLYCOPYRROLATE
     Indication: Product used for unknown indication
     Dosage: 2 BOUFF?ES MATIN ET SOIR
     Route: 055
  6. KARDEGIC [Concomitant]
     Active Substance: ASPIRIN DL-LYSINE
     Indication: Product used for unknown indication
     Dosage: 1 PRISE PAR JOUR
     Route: 048
  7. TADALAFIL [Concomitant]
     Active Substance: TADALAFIL
     Indication: Product used for unknown indication
     Dosage: 1 COMPRIM? LE MATIN
     Route: 048
  8. TAHOR [Concomitant]
     Active Substance: ATORVASTATIN CALCIUM
     Indication: Product used for unknown indication
     Dosage: 10 MG PAR JOUR
     Route: 048
  9. ENALAPRIL ALMUS [Concomitant]
     Indication: Product used for unknown indication
     Dosage: 20 MG PAR JOUR
     Route: 048

REACTIONS (1)
  - Toxic epidermal necrolysis [Fatal]

NARRATIVE: CASE EVENT DATE: 20210102
